FAERS Safety Report 14347398 (Version 1)
Quarter: 2018Q1

REPORT INFORMATION
  Report Type: Spontaneous
  Country: US (occurrence: US)
  Receive Date: 20180102
  Receipt Date: 20180102
  Transmission Date: 20180509
  Serious: No
  Sender: FDA-Public Use
  Company Number: None

PATIENT
  Age: 49 Year
  Sex: Female
  Weight: 78.75 kg

DRUGS (15)
  1. VIACTIVE [Concomitant]
  2. METHYPHENIDATE ER 36MG-2 TABS DAILY [Suspect]
     Active Substance: METHYLPHENIDATE
     Indication: FATIGUE
     Dosage: ?          QUANTITY:1 TABLET(S);?
     Route: 048
  3. METHYPHENIDATE ER 36MG-2 TABS DAILY [Suspect]
     Active Substance: METHYLPHENIDATE
     Indication: ATTENTION DEFICIT/HYPERACTIVITY DISORDER
     Dosage: ?          QUANTITY:1 TABLET(S);?
     Route: 048
  4. HYDROXYCHLOROQUINE HCL [Concomitant]
  5. HYDROCODONE WITH APAP [Concomitant]
  6. VOLTAREN [Concomitant]
     Active Substance: DICLOFENAC SODIUM
  7. PROVENTIL [Concomitant]
     Active Substance: ALBUTEROL
  8. MAGNESIUM CREAM [Concomitant]
  9. TOPIRAMATE. [Concomitant]
     Active Substance: TOPIRAMATE
  10. VIT. D [Concomitant]
  11. TOBRADEX [Concomitant]
     Active Substance: DEXAMETHASONE\TOBRAMYCIN
  12. IRON [Concomitant]
     Active Substance: IRON
  13. COD LIVER OIL [Concomitant]
     Active Substance: COD LIVER OIL
  14. PRAMIPEXOLE. [Concomitant]
     Active Substance: PRAMIPEXOLE
  15. CYANOCOBALAMIN. [Concomitant]
     Active Substance: CYANOCOBALAMIN

REACTIONS (2)
  - Somnolence [None]
  - Product substitution issue [None]

NARRATIVE: CASE EVENT DATE: 20171121
